FAERS Safety Report 8020582-0 (Version None)
Quarter: 2012Q1

REPORT INFORMATION
  Report Type: 
  Country: None (occurrence: None)
  Receive Date: 20120103
  Receipt Date: 20111228
  Transmission Date: 20120608
  Serious: Yes (Other)
  Sender: FDA-Public Use
  Company Number: US-ASTRAZENECA-2009UW21671

PATIENT
  Age: 40 Year
  Sex: Female
  Weight: 88 kg

DRUGS (35)
  1. SEROQUEL [Suspect]
     Route: 048
     Dates: start: 20010901
  2. SEROQUEL [Suspect]
     Route: 048
     Dates: start: 20080122
  3. KLONOPIN [Concomitant]
     Dates: start: 20080901
  4. TOPAMAX [Concomitant]
     Dates: start: 20071201, end: 20080901
  5. VICODIN [Concomitant]
     Dosage: 5/500 MG 1 TAB Q6 H
     Dates: start: 20081229
  6. TRAMADOL HCL [Concomitant]
     Dates: start: 20080901
  7. SEROQUEL [Suspect]
     Indication: MANIA
     Dosage: 25 III
     Route: 048
     Dates: start: 19990121
  8. SEROQUEL [Suspect]
     Route: 048
     Dates: start: 20010901
  9. SEROQUEL [Suspect]
     Route: 048
     Dates: start: 20080122
  10. IBUPROFEN (ADVIL) [Concomitant]
     Dates: start: 20080122
  11. SEROQUEL [Suspect]
     Route: 048
     Dates: start: 20010101
  12. SEROQUEL [Suspect]
     Route: 048
     Dates: start: 20010101
  13. ABILIFY [Concomitant]
     Dates: start: 20080301
  14. ABILIFY [Concomitant]
     Dates: start: 20080901
  15. GEODON [Concomitant]
     Dates: start: 20010101, end: 20050101
  16. KLONOPIN [Concomitant]
     Dates: start: 20071201, end: 20090801
  17. TOPAMAX [Concomitant]
     Dosage: 600 PM 300 MG AM
     Dates: start: 20080122
  18. PREVACID [Concomitant]
     Dates: start: 20080122
  19. FLEXERIL [Concomitant]
     Dosage: 3 PER DAY
     Dates: start: 20080122
  20. SEROQUEL [Suspect]
     Route: 048
     Dates: start: 20080122
  21. SEROQUEL [Suspect]
     Indication: BIPOLAR DISORDER
     Dosage: 25 III
     Route: 048
     Dates: start: 19990121
  22. SEROQUEL [Suspect]
     Route: 048
     Dates: start: 20010901
  23. KLONOPIN [Concomitant]
     Dosage: 2 MG PM 1 AM
     Dates: start: 20080122
  24. XANAX [Concomitant]
     Dates: start: 20071201, end: 20090801
  25. REMERON [Concomitant]
     Dates: start: 20080901
  26. LAMICTAL [Concomitant]
     Dates: start: 20000101, end: 20080801
  27. NAPROSYN [Concomitant]
     Dates: start: 20080901
  28. ABILIFY [Concomitant]
  29. SEROQUEL [Suspect]
     Indication: PANIC DISORDER
     Dosage: 25 III
     Route: 048
     Dates: start: 19990121
  30. REMERON [Concomitant]
     Dates: start: 20081001, end: 20090801
  31. SEROQUEL [Suspect]
     Route: 048
     Dates: start: 20010101
  32. GEODON [Concomitant]
     Dosage: 20 MG TO 80 MG
     Dates: start: 20010101, end: 20040401
  33. RISPERDAL [Concomitant]
     Dosage: 1 MG TO 2 MG
     Dates: start: 20000101, end: 20001201
  34. ZYPREXA/ZYPREXIA [Concomitant]
     Dates: start: 20050101
  35. CYMBALTA [Concomitant]
     Dates: start: 20090901

REACTIONS (8)
  - MOVEMENT DISORDER [None]
  - TARDIVE DYSKINESIA [None]
  - DIABETES MELLITUS [None]
  - DYSAESTHESIA [None]
  - NEUROPATHY PERIPHERAL [None]
  - OBESITY [None]
  - GLUCOSE TOLERANCE IMPAIRED [None]
  - WEIGHT INCREASED [None]
